FAERS Safety Report 6355762-3 (Version None)
Quarter: 2009Q3

REPORT INFORMATION
  Report Type: 
  Country: None (occurrence: None)
  Receive Date: 20090911
  Receipt Date: 20090911
  Transmission Date: 20100115
  Serious: No
  Sender: FDA-Public Use
  Company Number: None

PATIENT
  Sex: Female
  Weight: 63.05 kg

DRUGS (1)
  1. ZETIA [Suspect]
     Dosage: 8 MGS. 1 X DAY BEDTIME

REACTIONS (4)
  - DIARRHOEA [None]
  - MUSCLE SPASMS [None]
  - PAIN IN EXTREMITY [None]
  - POLYP [None]
